FAERS Safety Report 18657579 (Version 1)
Quarter: 2020Q4

REPORT INFORMATION
  Report Type: Report from Study
  Country: CA (occurrence: CA)
  Receive Date: 20201224
  Receipt Date: 20201224
  Transmission Date: 20210114
  Serious: Yes (Other)
  Sender: FDA-Public Use
  Company Number: CA-JNJFOC-20200947283

PATIENT
  Sex: Male

DRUGS (2)
  1. STELARA [Suspect]
     Active Substance: USTEKINUMAB
  2. STELARA [Suspect]
     Active Substance: USTEKINUMAB
     Indication: CROHN^S DISEASE
     Route: 058
     Dates: start: 20171027

REACTIONS (10)
  - Post procedural infection [Unknown]
  - Gastrointestinal haemorrhage [Unknown]
  - Melanocytic naevus [Not Recovered/Not Resolved]
  - Flatulence [Unknown]
  - Blood iron decreased [Recovering/Resolving]
  - Gastrointestinal inflammation [Unknown]
  - Pruritus [Not Recovered/Not Resolved]
  - Pus in stool [Unknown]
  - Cough [Not Recovered/Not Resolved]
  - Feeling cold [Recovered/Resolved]

NARRATIVE: CASE EVENT DATE: 2018
